FAERS Safety Report 4830844-3 (Version None)
Quarter: 2005Q4

REPORT INFORMATION
  Report Type: 
  Country: None (occurrence: None)
  Receive Date: 20051117
  Receipt Date: 20050930
  Transmission Date: 20060501
  Serious: Yes (Death, Hospitalization)
  Sender: FDA-Public Use
  Company Number: US-MERCK-0510USA01976

PATIENT
  Age: 78 Year
  Sex: Female

DRUGS (13)
  1. VIOXX [Suspect]
     Indication: ARTHRALGIA
     Route: 048
     Dates: start: 19990525, end: 20000705
  2. ADALAT [Concomitant]
     Route: 048
  3. DETROL [Concomitant]
     Route: 048
  4. FOSAMAX [Concomitant]
     Route: 048
  5. ISOSORBIDE MONONITRATE [Concomitant]
     Route: 048
  6. METOPROLOL [Concomitant]
     Route: 048
  7. NITROQUICK [Concomitant]
     Route: 048
  8. NORVASC [Concomitant]
     Route: 048
  9. PAXIL [Concomitant]
     Route: 048
  10. PIROXICAM [Concomitant]
     Route: 048
  11. PLAVIX [Concomitant]
     Route: 048
  12. RHINOCORT [Concomitant]
     Route: 048
  13. ZOCOR [Concomitant]
     Route: 048

REACTIONS (5)
  - CARDIAC FAILURE CONGESTIVE [None]
  - CEREBROVASCULAR ACCIDENT [None]
  - DEATH [None]
  - DEEP VEIN THROMBOSIS [None]
  - MYOCARDIAL INFARCTION [None]
